FAERS Safety Report 4457308-3 (Version None)
Quarter: 2004Q3

REPORT INFORMATION
  Report Type: 
  Country: None (occurrence: None)
  Receive Date: 20040922
  Receipt Date: 20040907
  Transmission Date: 20050211
  Serious: Yes (Disabling)
  Sender: FDA-Public Use
  Company Number: 200401315

PATIENT
  Age: 41 Year
  Sex: Female
  Weight: 56.246 kg

DRUGS (4)
  1. BOTOX [Suspect]
     Indication: MIGRAINE
  2. BOTOX PLACEBO [Suspect]
     Indication: MIGRAINE
  3. AMBIEN [Concomitant]
  4. LOESTRIN 1.5/30 [Concomitant]

REACTIONS (13)
  - ACTIVITIES OF DAILY LIVING IMPAIRED [None]
  - ANGER [None]
  - ARTHRALGIA [None]
  - CERVICAL SPINE FLATTENING [None]
  - DEPRESSION [None]
  - DRUG INEFFECTIVE [None]
  - FATIGUE [None]
  - INJECTION SITE HAEMORRHAGE [None]
  - MUSCLE SPASMS [None]
  - MYOSITIS [None]
  - NECK PAIN [None]
  - SPINAL OSTEOARTHRITIS [None]
  - THERAPY NON-RESPONDER [None]
